FAERS Safety Report 9979406 (Version 2)
Quarter: 2014Q1

REPORT INFORMATION
  Report Type: Report from Study
  Country: US (occurrence: US)
  Receive Date: 20140306
  Receipt Date: 20140306
  Transmission Date: 20141002
  Serious: Yes (Hospitalization, Other)
  Sender: FDA-Public Use
  Company Number: US-ABBVIE-13P-163-1105174-00

PATIENT
  Age: 57 Year
  Sex: Male

DRUGS (7)
  1. HUMIRA [Suspect]
     Indication: CROHN^S DISEASE
     Dates: start: 2010, end: 201205
  2. HUMIRA [Suspect]
     Dates: start: 20130612
  3. PREDNISONE [Suspect]
     Indication: CROHN^S DISEASE
     Dosage: 40MG DAILY WITH CROHN^S FLARE-TAPER 5MG PER DAY
  4. ENTOCORT [Suspect]
     Indication: CROHN^S DISEASE
     Dates: start: 20131115
  5. LISINOPRIL [Concomitant]
     Indication: PRODUCT USED FOR UNKNOWN INDICATION
  6. PRILOSEC [Concomitant]
     Indication: PRODUCT USED FOR UNKNOWN INDICATION
     Dosage: 40 MG DAILY
  7. PREDNISONE [Concomitant]
     Indication: CROHN^S DISEASE
     Dosage: 40 MG DAILY TAPER DOWN TO 5 MG DAILY

REACTIONS (16)
  - Crohn^s disease [Recovered/Resolved]
  - Crohn^s disease [Not Recovered/Not Resolved]
  - Nausea [Unknown]
  - Crohn^s disease [Recovered/Resolved]
  - Vomiting [Unknown]
  - Gastrointestinal disorder [Unknown]
  - Inflammation [Unknown]
  - Crohn^s disease [Recovered/Resolved]
  - Crohn^s disease [Recovered/Resolved]
  - Hypertension [Unknown]
  - Chest pain [Unknown]
  - Oesophageal pain [Unknown]
  - Tremor [Unknown]
  - Dysphemia [Unknown]
  - Gastric disorder [Unknown]
  - Crohn^s disease [Not Recovered/Not Resolved]
